FAERS Safety Report 18995339 (Version 1)
Quarter: 2021Q1

REPORT INFORMATION
  Report Type: Spontaneous
  Country: US (occurrence: US)
  Receive Date: 20210311
  Receipt Date: 20210311
  Transmission Date: 20210420
  Serious: No
  Sender: FDA-Public Use
  Company Number: US-DECIPHERA PHARMACEUTICALS LLC-2020-US-000738

PATIENT
  Sex: Female

DRUGS (1)
  1. QINLOCK [Suspect]
     Active Substance: RIPRETINIB
     Indication: GASTROINTESTINAL STROMAL TUMOUR
     Dosage: 150 MILLIGRAM, QD
     Route: 048
     Dates: start: 20201204

REACTIONS (9)
  - Product use complaint [Unknown]
  - Product coating issue [Unknown]
  - Dry skin [Unknown]
  - Blood pressure decreased [Unknown]
  - Weight gain poor [Unknown]
  - Blood thyroid stimulating hormone increased [Unknown]
  - Laboratory test abnormal [Unknown]
  - Alopecia [Unknown]
  - Diarrhoea [Unknown]
